FAERS Safety Report 5154110-4 (Version None)
Quarter: 2006Q4

REPORT INFORMATION
  Report Type: 
  Country: None (occurrence: None)
  Receive Date: 20061120
  Receipt Date: 20061106
  Transmission Date: 20070319
  Serious: Yes (Other)
  Sender: FDA-Public Use
  Company Number: JP-MERCK-0611USA02520

PATIENT
  Age: 39 Year
  Sex: Male

DRUGS (6)
  1. PEPCID [Suspect]
     Indication: GASTRIC DISORDER
     Route: 048
     Dates: start: 20060101, end: 20060101
  2. GASMOTIN [Concomitant]
     Route: 048
  3. LAC-B [Concomitant]
     Route: 048
  4. ANTIMICROBIAL (UNSPECIFIED) [Suspect]
     Route: 048
  5. [THERAPY UNSPECIFIED] [Suspect]
     Route: 048
  6. [THERAPY UNSPECIFIED] [Suspect]
     Route: 048

REACTIONS (1)
  - ANAPHYLACTOID REACTION [None]
